FAERS Safety Report 15436725 (Version 1)
Quarter: 2018Q3

REPORT INFORMATION
  Report Type: Spontaneous
  Country: RU (occurrence: RU)
  Receive Date: 20180927
  Receipt Date: 20180927
  Transmission Date: 20181010
  Serious: Yes (Other)
  Sender: FDA-Public Use
  Company Number: RU-B. BRAUN MEDICAL INC.-2055436

PATIENT
  Age: 32 Year
  Sex: Female
  Weight: 65 kg

DRUGS (6)
  1. ISOTONIC STEROFUNDIN [Concomitant]
  2. OXYTOCIN. [Concomitant]
     Active Substance: OXYTOCIN
  3. ENOXAPARIN [Concomitant]
     Active Substance: ENOXAPARIN
  4. SODIUM CHLORIDE INJECTIONS USP 0264?7800?00 0264?7800?10 [Suspect]
     Active Substance: SODIUM CHLORIDE
  5. KETOROLAC [Concomitant]
     Active Substance: KETOROLAC\KETOROLAC TROMETHAMINE
  6. TRIMEPERIDIN [Concomitant]

REACTIONS (1)
  - Urticaria [None]
